FAERS Safety Report 24779372 (Version 1)
Quarter: 2024Q4

REPORT INFORMATION
  Report Type: Report from Study
  Country: US (occurrence: US)
  Receive Date: 20241226
  Receipt Date: 20241226
  Transmission Date: 20250115
  Serious: Yes (Hospitalization, Other)
  Sender: ABBVIE
  Company Number: US-ABBVIE-6062686

PATIENT
  Age: 48 Year
  Sex: Male

DRUGS (1)
  1. SKYRIZI [Suspect]
     Active Substance: RISANKIZUMAB-RZAA
     Indication: Psoriasis
     Dosage: FORM STRENGTH 600MG/10ML (WEEK 0)
     Route: 042
     Dates: start: 20240901, end: 20240901

REACTIONS (5)
  - Cerebral disorder [Unknown]
  - Pulmonary mass [Unknown]
  - Pneumonia [Unknown]
  - Rehabilitation therapy [Unknown]
  - Hospitalisation [Unknown]

NARRATIVE: CASE EVENT DATE: 20240101
